FAERS Safety Report 6527054-0 (Version None)
Quarter: 2009Q4

REPORT INFORMATION
  Report Type: 
  Country: None (occurrence: None)
  Receive Date: 20091218
  Receipt Date: 20090911
  Transmission Date: 20100525
  Serious: No
  Sender: FDA-Public Use
  Company Number: 007546

PATIENT
  Age: 84 Year
  Sex: Male

DRUGS (1)
  1. SAMSCA [Suspect]
     Indication: HYPONATRAEMIA
     Dosage: 15 MG, PRN, ORAL
     Route: 048
     Dates: start: 20090902, end: 20090902

REACTIONS (1)
  - BLOOD SODIUM INCREASED [None]
